FAERS Safety Report 10248175 (Version 1)
Quarter: 2014Q2

REPORT INFORMATION
  Report Type: Spontaneous
  Country: CR (occurrence: CR)
  Receive Date: 20140620
  Receipt Date: 20140620
  Transmission Date: 20141212
  Serious: Yes (Other)
  Sender: FDA-Public Use
  Company Number: CR-ABBVIE-14P-039-1248698-00

PATIENT
  Sex: 0

DRUGS (1)
  1. CHIROCAINE [Suspect]
     Indication: SPINAL ANAESTHESIA

REACTIONS (2)
  - Procedural pain [Unknown]
  - Drug ineffective [Unknown]
